FAERS Safety Report 10634190 (Version 4)
Quarter: 2015Q4

REPORT INFORMATION
  Report Type: Spontaneous
  Country: US (occurrence: US)
  Receive Date: 20141205
  Receipt Date: 20151202
  Transmission Date: 20160304
  Serious: Yes (Death, Hospitalization)
  Sender: FDA-Public Use
  Company Number: US-ASTELLAS-2014US013797

PATIENT
  Age: 74 Year
  Sex: Male

DRUGS (1)
  1. XTANDI [Suspect]
     Active Substance: ENZALUTAMIDE
     Indication: PROSTATE CANCER
     Route: 048
     Dates: start: 2014

REACTIONS (6)
  - Cardiac pacemaker insertion [Unknown]
  - Coronary artery occlusion [Unknown]
  - Drug intolerance [Unknown]
  - Agitation [Unknown]
  - Cardiac disorder [Fatal]
  - Akathisia [Unknown]

NARRATIVE: CASE EVENT DATE: 2014
